FAERS Safety Report 5897847-1 (Version None)
Quarter: 2008Q3

REPORT INFORMATION
  Report Type: 
  Country: None (occurrence: None)
  Receive Date: 20080924
  Receipt Date: 20080924
  Transmission Date: 20090109
  Serious: No
  Sender: FDA-Public Use
  Company Number: None

PATIENT
  Age: 36 Year
  Sex: Female
  Weight: 64.4108 kg

DRUGS (7)
  1. FLEXERIL [Suspect]
     Indication: MUSCLE SPASMS
     Dosage: 10MG 3 TIMES A DAY PO
     Route: 048
     Dates: start: 20060729, end: 20080108
  2. NAPROXEN [Suspect]
     Indication: BACK PAIN
  3. NAPROXEN [Suspect]
     Indication: MUSCULOSKELETAL PAIN
  4. NAPROXEN [Suspect]
     Indication: NECK PAIN
  5. IBUPROFEN [Concomitant]
  6. NAPROXEN SODIUM [Concomitant]
  7. FLEXERIL [Concomitant]

REACTIONS (12)
  - DECREASED ACTIVITY [None]
  - DIABETES MELLITUS [None]
  - DIZZINESS [None]
  - FASCIITIS [None]
  - FEELING ABNORMAL [None]
  - FIBROMYALGIA [None]
  - HUNGER [None]
  - HYPOAESTHESIA [None]
  - ILL-DEFINED DISORDER [None]
  - PAIN [None]
  - SWELLING [None]
  - WEIGHT INCREASED [None]
